FAERS Safety Report 6809955-9 (Version None)
Quarter: 2010Q2

REPORT INFORMATION
  Report Type: 
  Country: None (occurrence: None)
  Receive Date: 20100630
  Receipt Date: 20100628
  Transmission Date: 20101027
  Serious: Yes (Hospitalization)
  Sender: FDA-Public Use
  Company Number: A0867414A

PATIENT
  Age: 57 Year
  Sex: Male

DRUGS (10)
  1. FLOVENT [Suspect]
     Indication: DYSPNOEA
     Dosage: 2PUFF TWICE PER DAY
     Route: 055
     Dates: start: 20090101
  2. COZAAR [Concomitant]
  3. SIMVASTATIN [Concomitant]
  4. LANTUS [Concomitant]
  5. UNSPECIFIED MEDICATION [Concomitant]
  6. GLIPIZIDE [Concomitant]
  7. ACETAMINOPHEN [Concomitant]
  8. IBUPROFEN [Concomitant]
  9. HYDROCHLOROTHIAZIDE [Concomitant]
  10. COMBIVENT [Concomitant]

REACTIONS (2)
  - OXYGEN SATURATION DECREASED [None]
  - PNEUMONIA [None]
